FAERS Safety Report 5008681-9 (Version None)
Quarter: 2006Q2

REPORT INFORMATION
  Report Type: 
  Country: None (occurrence: None)
  Receive Date: 20060523
  Receipt Date: 20060517
  Transmission Date: 20061013
  Serious: Yes (Hospitalization)
  Sender: FDA-Public Use
  Company Number: FR-GLAXOSMITHKLINE-B0424309A

PATIENT
  Age: 4 Year
  Sex: Male
  Weight: 14 kg

DRUGS (5)
  1. FORTUM [Suspect]
     Dosage: 750MG FOUR TIMES PER DAY
     Route: 042
     Dates: start: 20060424, end: 20060428
  2. ACETAMINOPHEN [Concomitant]
     Route: 042
     Dates: start: 20060424, end: 20060429
  3. TPN [Concomitant]
     Indication: PARENTERAL NUTRITION
     Route: 042
  4. RANIPLEX [Concomitant]
     Route: 065
  5. FOSFOCINE [Concomitant]
     Route: 065
     Dates: start: 20060424

REACTIONS (6)
  - GAMMA-GLUTAMYLTRANSFERASE INCREASED [None]
  - HEPATITIS CHOLESTATIC [None]
  - HYPERAMYLASAEMIA [None]
  - HYPERTENSIVE CRISIS [None]
  - LIPASE INCREASED [None]
  - PANCREATITIS [None]
